FAERS Safety Report 12451571 (Version 3)
Quarter: 2016Q3

REPORT INFORMATION
  Report Type: Spontaneous
  Country: JP (occurrence: JP)
  Receive Date: 20160609
  Receipt Date: 20160906
  Transmission Date: 20161109
  Serious: Yes (Death, Other)
  Sender: FDA-Public Use
  Company Number: JP-AMGEN-JPNSP2016074049

PATIENT
  Age: 87 Year
  Sex: Female

DRUGS (4)
  1. TERIBONE [Concomitant]
     Active Substance: TERIPARATIDE ACETATE
     Dosage: 56.5 MUG, QWK
     Route: 058
     Dates: start: 201205, end: 201302
  2. PRALIA [Suspect]
     Active Substance: DENOSUMAB
     Indication: PRODUCT USED FOR UNKNOWN INDICATION
     Dosage: 60 MG, Q6MO
     Route: 058
     Dates: start: 20140522, end: 20151022
  3. METOTREKSAT EBEWE [Suspect]
     Active Substance: METHOTREXATE SODIUM
     Indication: RHEUMATOID ARTHRITIS
     Dosage: 6 MG, QWK
     Route: 065
  4. FORTEO [Concomitant]
     Active Substance: TERIPARATIDE
     Dosage: 20 MUG, QD
     Route: 058
     Dates: start: 201303, end: 20140404

REACTIONS (2)
  - Lymphoma [Fatal]
  - Osteonecrosis of jaw [Recovering/Resolving]

NARRATIVE: CASE EVENT DATE: 201605
